FAERS Safety Report 20900423 (Version 4)
Quarter: 2023Q1

REPORT INFORMATION
  Report Type: Spontaneous
  Country: JP (occurrence: JP)
  Receive Date: 20220601
  Receipt Date: 20230215
  Transmission Date: 20230418
  Serious: Yes (Hospitalization, Other)
  Sender: FDA-Public Use
  Company Number: JP-AMGEN-JPNSP2022091880

PATIENT
  Age: 87 Year
  Sex: Female
  Weight: 47 kg

DRUGS (10)
  1. EVENITY [Suspect]
     Active Substance: ROMOSOZUMAB-AQQG
     Indication: Osteoporosis
     Dosage: 210 MILLIGRAM, QMO
     Route: 058
     Dates: start: 2021, end: 20220407
  2. BISOPROLOL FUMARATE [Concomitant]
     Active Substance: BISOPROLOL FUMARATE
     Indication: Hypertension
     Dosage: 2.5 MILLIGRAM, QD
     Dates: start: 20210706
  3. AMLODIPINE BESYLATE [Concomitant]
     Active Substance: AMLODIPINE BESYLATE
     Indication: Hypertension
     Dosage: 5 MILLIGRAM, QD
     Dates: start: 20210418
  4. DIOVAN [Concomitant]
     Active Substance: VALSARTAN
     Indication: Hypertension
     Dosage: 40 MILLIGRAM, QD
     Dates: start: 20211202
  5. METHYLCOBALAMIN [Concomitant]
     Active Substance: METHYLCOBALAMIN
     Indication: Pain in extremity
     Dosage: 1500 MICROGRAM, DIVIDED INTO THREE DOSES DAILY
     Dates: start: 2009
  6. LIMAPROST [Concomitant]
     Active Substance: LIMAPROST
     Indication: Osteoporosis
     Dosage: 15 MICROGRAM,  DIVIDED INTO THREE DAILY
     Dates: start: 2009
  7. LYRICA [Concomitant]
     Active Substance: PREGABALIN
     Indication: Pain
     Dosage: 50 MILLIGRAM, DIVIDED INTO 2 DAILY
     Dates: start: 202109
  8. ZOLPIDEM TARTRATE [Concomitant]
     Active Substance: ZOLPIDEM TARTRATE
     Indication: Insomnia
     Dosage: 5 MILLIGRAM, QD
     Dates: start: 202204
  9. Pursennid [Concomitant]
     Indication: Constipation
     Dosage: 12 MILLIGRAM, QD
     Dates: start: 202206
  10. TRAMCET [Concomitant]
     Active Substance: ACETAMINOPHEN\TRAMADOL
     Indication: Pain
     Dosage: UNK UNK, TID
     Dates: start: 20220418

REACTIONS (6)
  - Lower limb fracture [Not Recovered/Not Resolved]
  - Rapidly progressive osteoarthritis [Recovered/Resolved]
  - Back pain [Unknown]
  - Ankle deformity [Not Recovered/Not Resolved]
  - Hypoaesthesia [Unknown]
  - Pain in extremity [Unknown]

NARRATIVE: CASE EVENT DATE: 20210101
